FAERS Safety Report 25865697 (Version 1)
Quarter: 2025Q3

REPORT INFORMATION
  Report Type: Spontaneous
  Country: US (occurrence: US)
  Receive Date: 20250930
  Receipt Date: 20250930
  Transmission Date: 20251020
  Serious: No
  Sender: HERON
  Company Number: US-HERON THERAPEUTICS, INC-HRTX-2024-001064

PATIENT
  Age: 38 Year
  Sex: Female

DRUGS (3)
  1. ZYNRELEF [Suspect]
     Active Substance: BUPIVACAINE\MELOXICAM
     Indication: Postoperative analgesia
     Route: 065
     Dates: start: 20241118, end: 20241118
  2. ZYNRELEF [Suspect]
     Active Substance: BUPIVACAINE\MELOXICAM
     Indication: Intervertebral disc operation
  3. TRANEXAMIC ACID [Concomitant]
     Active Substance: TRANEXAMIC ACID
     Indication: Product used for unknown indication
     Route: 042

REACTIONS (4)
  - Swelling [Recovered/Resolved]
  - Contusion [Recovered/Resolved]
  - Bloody discharge [Recovered/Resolved]
  - Wrong technique in product usage process [Unknown]

NARRATIVE: CASE EVENT DATE: 20241118
